FAERS Safety Report 24580171 (Version 1)
Quarter: 2024Q4

REPORT INFORMATION
  Report Type: Spontaneous
  Country: US (occurrence: US)
  Receive Date: 20241105
  Receipt Date: 20241105
  Transmission Date: 20250115
  Serious: No
  Sender: NOVARTIS
  Company Number: US-002147023-NVSC2024US214247

PATIENT
  Age: 54 Year
  Sex: Male
  Weight: 79.38 kg

DRUGS (1)
  1. LEQVIO [Suspect]
     Active Substance: INCLISIRAN SODIUM
     Indication: Hyperlipidaemia
     Dosage: 284 MG, OTHER (INITIAL DOES, SECOND DOSE AT THRENTHS
     Route: 058
     Dates: start: 20240405, end: 20240705

REACTIONS (2)
  - Arthralgia [Recovering/Resolving]
  - Pain in extremity [Recovering/Resolving]

NARRATIVE: CASE EVENT DATE: 20240906
